FAERS Safety Report 7104852-6 (Version None)
Quarter: 2010Q4

REPORT INFORMATION
  Report Type: 
  Country: None (occurrence: None)
  Receive Date: 20101116
  Receipt Date: 20101108
  Transmission Date: 20110411
  Serious: Yes (Other)
  Sender: FDA-Public Use
  Company Number: US-PFIZER INC-2010145629

PATIENT
  Sex: Female
  Weight: 59 kg

DRUGS (4)
  1. LIPITOR [Suspect]
     Indication: BLOOD CHOLESTEROL INCREASED
     Dosage: 10 MG, 1X/DAY
     Dates: start: 20000101
  2. PROPAFENONE [Concomitant]
  3. DIOVAN [Concomitant]
  4. WARFARIN [Concomitant]

REACTIONS (4)
  - CARPAL TUNNEL SYNDROME [None]
  - MUSCULAR WEAKNESS [None]
  - OSTEOARTHRITIS [None]
  - PAIN [None]
